FAERS Safety Report 20696520 (Version 1)
Quarter: 2022Q2

REPORT INFORMATION
  Report Type: Other
  Country: US (occurrence: US)
  Receive Date: 20220411
  Receipt Date: 20220411
  Transmission Date: 20220721
  Serious: No
  Sender: FDA-Public Use
  Company Number: US-TRAVERE-2022TVT00327

PATIENT
  Age: 3 Year
  Sex: Female

DRUGS (1)
  1. CHOLBAM [Suspect]
     Active Substance: CHOLIC ACID
     Indication: Cerebrohepatorenal syndrome
     Dosage: CHOLBAM 50 MG 2 CAPS IN AM, AND 1 CAPSULE EVERY EVENING. ?TAKEN THROUGH G- TUBE
     Route: 048
     Dates: start: 20220228

REACTIONS (2)
  - Restlessness [Unknown]
  - Sleep disorder [Unknown]
